FAERS Safety Report 19247394 (Version 1)
Quarter: 2021Q2

REPORT INFORMATION
  Report Type: Spontaneous
  Country: TW (occurrence: TW)
  Receive Date: 20210512
  Receipt Date: 20210512
  Transmission Date: 20210717
  Serious: Yes (Other)
  Sender: FDA-Public Use
  Company Number: TW-PFIZER INC-2021477322

PATIENT
  Sex: Male

DRUGS (3)
  1. XANAX [Suspect]
     Active Substance: ALPRAZOLAM
     Indication: DYSPNOEA
  2. XANAX [Suspect]
     Active Substance: ALPRAZOLAM
     Indication: DISCOMFORT
  3. XANAX [Suspect]
     Active Substance: ALPRAZOLAM
     Indication: CHEST DISCOMFORT

REACTIONS (3)
  - Intraocular pressure increased [Unknown]
  - Glaucoma [Unknown]
  - Off label use [Unknown]
